FAERS Safety Report 16465118 (Version 1)
Quarter: 2019Q2

REPORT INFORMATION
  Report Type: Spontaneous
  Country: US (occurrence: US)
  Receive Date: 20190621
  Receipt Date: 20190621
  Transmission Date: 20190711
  Serious: No
  Sender: FDA-Public Use
  Company Number: US-TAKEDA-2019TUS038414

PATIENT
  Age: 63 Year
  Sex: Male

DRUGS (3)
  1. TRINTELLIX [Suspect]
     Active Substance: VORTIOXETINE HYDROBROMIDE
     Indication: ANXIETY
  2. TRINTELLIX [Suspect]
     Active Substance: VORTIOXETINE HYDROBROMIDE
     Indication: DEPRESSION
     Dosage: 20 MILLIGRAM, QD
     Route: 065
     Dates: start: 2019, end: 2019
  3. TRINTELLIX [Suspect]
     Active Substance: VORTIOXETINE HYDROBROMIDE
     Indication: PANIC DISORDER
     Dosage: 10 MILLIGRAM, QD
     Route: 065
     Dates: start: 2019, end: 2019

REACTIONS (3)
  - Energy increased [Unknown]
  - Crying [Unknown]
  - Emotional disorder [Unknown]

NARRATIVE: CASE EVENT DATE: 2019
